FAERS Safety Report 21016547 (Version 4)
Quarter: 2025Q2

REPORT INFORMATION
  Report Type: Report from Study
  Country: US (occurrence: US)
  Receive Date: 20220628
  Receipt Date: 20250630
  Transmission Date: 20250717
  Serious: Yes (Other)
  Sender: TAKEDA
  Company Number: US-TAKEDA-US202013595

PATIENT
  Sex: Female

DRUGS (3)
  1. HUMAN IMMUNOGLOBULIN G [Suspect]
     Active Substance: HUMAN IMMUNOGLOBULIN G
     Indication: Immunodeficiency common variable
  2. HYQVIA [Suspect]
     Active Substance: HUMAN IMMUNOGLOBULIN G\HYALURONIDASE (HUMAN RECOMBINANT)
     Indication: Immunodeficiency common variable
  3. HYQVIA [Suspect]
     Active Substance: HUMAN IMMUNOGLOBULIN G\HYALURONIDASE (HUMAN RECOMBINANT)
     Indication: Primary immunodeficiency syndrome

REACTIONS (13)
  - Pneumonia [Unknown]
  - Suspected COVID-19 [Unknown]
  - Urinary tract infection [Unknown]
  - Pharyngitis [Unknown]
  - COVID-19 [Recovered/Resolved]
  - Insurance issue [Unknown]
  - Sinusitis [Unknown]
  - Pain [Unknown]
  - Headache [Unknown]
  - Inappropriate schedule of product administration [Unknown]
  - Nasal congestion [Unknown]
  - Dyspnoea [Unknown]
  - Fatigue [Unknown]
